FAERS Safety Report 21961546 (Version 2)
Quarter: 2023Q1

REPORT INFORMATION
  Report Type: Other
  Country: US (occurrence: None)
  Receive Date: 20230207
  Receipt Date: 20230208
  Transmission Date: 20230417
  Serious: Yes (Hospitalization)
  Sender: FDA-Public Use
  Company Number: US-ROCHE-3277857

PATIENT
  Age: 32 Year
  Sex: Male

DRUGS (1)
  1. OCREVUS [Suspect]
     Active Substance: OCRELIZUMAB
     Indication: Multiple sclerosis
     Dosage: INFUSE 300MG DAY 1; THEN 300MG DAY 15
     Route: 042

REACTIONS (5)
  - Tooth infection [Recovered/Resolved]
  - Herpes zoster [Recovered/Resolved]
  - Illness [Recovered/Resolved]
  - Headache [Recovered/Resolved]
  - Infusion related reaction [Unknown]
